FAERS Safety Report 9431585 (Version 2)
Quarter: 2013Q3

REPORT INFORMATION
  Report Type: Spontaneous
  Country: IT (occurrence: IT)
  Receive Date: 20130731
  Receipt Date: 20130912
  Transmission Date: 20140515
  Serious: Yes (Other)
  Sender: FDA-Public Use
  Company Number: IT-RANBAXY-2013R1-71588

PATIENT
  Age: 93 Year
  Sex: Female

DRUGS (2)
  1. NEBIVOLOL [Suspect]
     Indication: HYPERTENSION
     Dosage: 5MG DAILY
     Route: 048
     Dates: start: 20100101
  2. MODURETIC [Suspect]
     Indication: HYPERTENSION
     Dosage: 1 DF DAILY
     Route: 048
     Dates: start: 20130401, end: 20130708

REACTIONS (3)
  - Presyncope [Recovering/Resolving]
  - Head injury [Recovering/Resolving]
  - Hypotension [Recovering/Resolving]
